FAERS Safety Report 6554463-6 (Version None)
Quarter: 2010Q1

REPORT INFORMATION
  Report Type: 
  Country: None (occurrence: None)
  Receive Date: 20100125
  Receipt Date: 20100125
  Transmission Date: 20100710
  Serious: Yes (Other)
  Sender: FDA-Public Use
  Company Number: None

PATIENT
  Age: 32 Year
  Sex: Female
  Weight: 61.2356 kg

DRUGS (3)
  1. EFFEXOR XR [Suspect]
     Indication: ANXIETY DISORDER
     Dosage: 75 MG DAILY PO
     Route: 048
     Dates: start: 20080405, end: 20100122
  2. EFFEXOR XR [Suspect]
     Indication: DEPRESSION
     Dosage: 75 MG DAILY PO
     Route: 048
     Dates: start: 20080405, end: 20100122
  3. EFFEXOR XR [Suspect]
     Indication: PANIC ATTACK
     Dosage: 75 MG DAILY PO
     Route: 048
     Dates: start: 20080405, end: 20100122

REACTIONS (28)
  - AGITATION [None]
  - AMNESIA [None]
  - ANGER [None]
  - APATHY [None]
  - CONFUSIONAL STATE [None]
  - CRYING [None]
  - DEPERSONALISATION [None]
  - DEPRESSED MOOD [None]
  - DISTURBANCE IN ATTENTION [None]
  - DIZZINESS [None]
  - DRY MOUTH [None]
  - EMOTIONAL DISORDER [None]
  - FATIGUE [None]
  - FEELING OF DESPAIR [None]
  - GINGIVAL PAIN [None]
  - HEADACHE [None]
  - HOSTILITY [None]
  - INCREASED TENDENCY TO BRUISE [None]
  - IRRITABILITY [None]
  - MUSCLE TWITCHING [None]
  - NIGHT SWEATS [None]
  - NIGHTMARE [None]
  - PANIC ATTACK [None]
  - PARAESTHESIA [None]
  - PSYCHOMOTOR HYPERACTIVITY [None]
  - SOMNOLENCE [None]
  - STOMATITIS [None]
  - SUICIDAL IDEATION [None]
